FAERS Safety Report 4412554-X (Version None)
Quarter: 2004Q2

REPORT INFORMATION
  Report Type: 
  Country: None (occurrence: None)
  Receive Date: 20040630
  Receipt Date: 20040412
  Transmission Date: 20050107
  Serious: No
  Sender: FDA-Public Use
  Company Number: 04P-163-0257000-00

PATIENT
  Age: 82 Year
  Sex: Female
  Weight: 56.6996 kg

DRUGS (10)
  1. HUMIRA [Suspect]
     Indication: RHEUMATOID ARTHRITIS
     Dosage: 40 MG, 1 IN 2 WK, SUBCUTANEOUS
     Route: 058
     Dates: start: 20031003
  2. LANSOPRAZOLE [Concomitant]
  3. NABUMETONE [Concomitant]
  4. PROVELLA-14 [Concomitant]
  5. METHOTREXATE SODIUM [Concomitant]
  6. ALENDRONATE SODIUM [Concomitant]
  7. CALCIUM WITH VITAMIN D [Concomitant]
  8. OCUVITE [Concomitant]
  9. LEVOTHYROXINE SODIUM [Concomitant]
  10. CROMOLYN SODIUM [Concomitant]

REACTIONS (3)
  - INJECTION SITE BURNING [None]
  - INJECTION SITE ERYTHEMA [None]
  - INJECTION SITE PRURITUS [None]
